FAERS Safety Report 9688298 (Version 3)
Quarter: 2014Q1

REPORT INFORMATION
  Report Type: Spontaneous
  Country: US (occurrence: US)
  Receive Date: 20131114
  Receipt Date: 20140108
  Transmission Date: 20141002
  Serious: Yes (Hospitalization, Other)
  Sender: FDA-Public Use
  Company Number: US-JNJFOC-20131104442

PATIENT
  Age: 75 Year
  Sex: Male
  Weight: 95.26 kg

DRUGS (16)
  1. XARELTO [Suspect]
     Indication: CEREBROVASCULAR ACCIDENT PROPHYLAXIS
     Route: 048
     Dates: start: 20130701, end: 20131106
  2. XARELTO [Suspect]
     Indication: ATRIAL FIBRILLATION
     Route: 048
     Dates: start: 20130701, end: 20131106
  3. SIMVASTATIN [Concomitant]
     Route: 048
  4. SIMVASTATIN [Concomitant]
     Route: 048
  5. TOPROL [Concomitant]
     Route: 065
  6. DILTIAZEM [Concomitant]
     Route: 065
  7. AMIODARONE [Concomitant]
     Route: 048
  8. METFORMIN [Concomitant]
     Route: 048
  9. JANUVIA [Concomitant]
     Route: 065
  10. NASACORT [Concomitant]
     Route: 065
  11. FINASTERIDE [Concomitant]
     Route: 048
  12. FLOMAX [Concomitant]
     Route: 065
  13. LASIX [Concomitant]
     Indication: OEDEMA PERIPHERAL
     Route: 065
  14. DILANTIN [Concomitant]
     Dosage: FOR 4 DAYS
     Route: 065
  15. AMLODIPINE BESYLATE [Concomitant]
     Route: 065
  16. METOPROLOL [Concomitant]
     Route: 065

REACTIONS (4)
  - Haemorrhage intracranial [Recovering/Resolving]
  - Splenic rupture [Unknown]
  - Decreased appetite [Unknown]
  - Weight decreased [Unknown]
